FAERS Safety Report 13693813 (Version 1)
Quarter: 2017Q2

REPORT INFORMATION
  Report Type: Spontaneous
  Country: US (occurrence: US)
  Receive Date: 20170626
  Receipt Date: 20170626
  Transmission Date: 20170830
  Serious: Yes (Disabling)
  Sender: FDA-Public Use
  Company Number: None

PATIENT
  Age: 32 Year
  Sex: Female
  Weight: 58.5 kg

DRUGS (1)
  1. CYMBALTA [Suspect]
     Active Substance: DULOXETINE HYDROCHLORIDE
     Indication: FIBROMYALGIA
     Dosage: ?          OTHER STRENGTH:MG;QUANTITY:2 CAPSULE(S);?TWICE A DAY ORAL
     Route: 048

REACTIONS (6)
  - Depression [None]
  - Dizziness [None]
  - Drug withdrawal syndrome [None]
  - Paraesthesia [None]
  - Impaired work ability [None]
  - Pain [None]

NARRATIVE: CASE EVENT DATE: 20150916
